FAERS Safety Report 11116443 (Version 4)
Quarter: 2015Q2

REPORT INFORMATION
  Report Type: Report from Study
  Country: PT (occurrence: PT)
  Receive Date: 20150515
  Receipt Date: 20150617
  Transmission Date: 20150821
  Serious: Yes (Hospitalization)
  Sender: FDA-Public Use
  Company Number: PT-ABBVIE-15K-130-1388603-00

PATIENT
  Age: 38 Year
  Sex: Female

DRUGS (1)
  1. HUMIRA [Suspect]
     Active Substance: ADALIMUMAB
     Indication: AXIAL SPONDYLOARTHRITIS
     Route: 065
     Dates: start: 20150110

REACTIONS (15)
  - Hypoaesthesia [Recovered/Resolved]
  - Fall [Recovered/Resolved]
  - Accident [Unknown]
  - Headache [Recovered/Resolved]
  - Injection site dryness [Recovering/Resolving]
  - Back pain [Recovered/Resolved]
  - Accident [Unknown]
  - Pelvic pain [Recovering/Resolving]
  - Arthralgia [Not Recovered/Not Resolved]
  - Eye inflammation [Not Recovered/Not Resolved]
  - Back pain [Not Recovered/Not Resolved]
  - Abasia [Recovered/Resolved]
  - Hypoaesthesia [Recovered/Resolved]
  - Injection site erythema [Recovering/Resolving]
  - Fall [Recovered/Resolved]

NARRATIVE: CASE EVENT DATE: 20150428
